FAERS Safety Report 23139746 (Version 1)
Quarter: 2023Q4

REPORT INFORMATION
  Report Type: Spontaneous
  Country: US (occurrence: US)
  Receive Date: 20231102
  Receipt Date: 20231102
  Transmission Date: 20240110
  Serious: Yes (Other)
  Sender: FDA-Public Use
  Company Number: US-SCA PHARMACEUTICALS-2022SCA00011

PATIENT
  Age: 28 Year
  Sex: Female
  Weight: 72 kg

DRUGS (6)
  1. BUPIVACAINE\FENTANYL [Suspect]
     Active Substance: BUPIVACAINE\FENTANYL
     Indication: Labour pain
     Dosage: 8 ML GIVEN AT 08: 35 (LOADING DOSE)
     Route: 008
     Dates: start: 20220421, end: 20220421
  2. BUPIVACAINE\FENTANYL [Suspect]
     Active Substance: BUPIVACAINE\FENTANYL
     Dosage: 8 ML/ HOUR; BOLUS 8ML Q 30 MIN, MAX 1 HR LIMIT 24ML
     Route: 008
     Dates: start: 20220421, end: 20220421
  3. BUPIVACAINE\FENTANYL [Suspect]
     Active Substance: BUPIVACAINE\FENTANYL
     Dosage: 6 ML/ HOUR
     Route: 008
     Dates: start: 20220421, end: 20220421
  4. ALBUTEROL [Concomitant]
     Active Substance: ALBUTEROL
  5. LAMICTAL [Concomitant]
     Active Substance: LAMOTRIGINE
  6. FOLIC ACID [Concomitant]
     Active Substance: FOLIC ACID

REACTIONS (1)
  - Blood pressure decreased [Recovered/Resolved]

NARRATIVE: CASE EVENT DATE: 20220421
